FAERS Safety Report 6730055-0 (Version None)
Quarter: 2010Q2

REPORT INFORMATION
  Report Type: 
  Country: None (occurrence: None)
  Receive Date: 20100513
  Receipt Date: 20100429
  Transmission Date: 20101027
  Serious: Yes (Disabling, Other)
  Sender: FDA-Public Use
  Company Number: ACO_00789_2010

PATIENT
  Age: 56 Year
  Sex: Female

DRUGS (6)
  1. AMPYRA [Suspect]
     Indication: GAIT DISTURBANCE
     Dosage: 10 MG BID ORAL
     Route: 048
     Dates: start: 20100423, end: 20100428
  2. EVISTA [Concomitant]
  3. SYNTHROID [Concomitant]
  4. VITAMIN D [Concomitant]
  5. CALCIUM CARBONATE [Concomitant]
  6. VALIUM [Concomitant]

REACTIONS (7)
  - BURNING SENSATION [None]
  - DIZZINESS [None]
  - DRUG DOSE OMISSION [None]
  - ERYTHEMA [None]
  - JOINT STIFFNESS [None]
  - MENTAL IMPAIRMENT [None]
  - MUSCULOSKELETAL STIFFNESS [None]
